FAERS Safety Report 5601821-X (Version None)
Quarter: 2008Q1

REPORT INFORMATION
  Report Type: 
  Country: None (occurrence: None)
  Receive Date: 20080124
  Receipt Date: 20071226
  Transmission Date: 20080703
  Serious: Yes (Other)
  Sender: FDA-Public Use
  Company Number: JP-PFIZER INC-2008003037

PATIENT
  Age: 58 Year
  Sex: Female

DRUGS (3)
  1. MIGLITOL TABLET [Suspect]
     Indication: DIABETES MELLITUS
     Dosage: DAILY DOSE:112.5MG
     Route: 048
     Dates: start: 20070918, end: 20070925
  2. AMARYL [Concomitant]
     Dosage: DAILY DOSE:3MG
     Route: 048
  3. LIVALO [Concomitant]
     Dosage: DAILY DOSE:1MG
     Route: 048

REACTIONS (4)
  - ALANINE AMINOTRANSFERASE INCREASED [None]
  - ASPARTATE AMINOTRANSFERASE INCREASED [None]
  - GAMMA-GLUTAMYLTRANSFERASE INCREASED [None]
  - LIVER DISORDER [None]
